APPROVED DRUG PRODUCT: ANTABUSE
Active Ingredient: DISULFIRAM
Strength: 250MG
Dosage Form/Route: TABLET;ORAL
Application: A088482 | Product #001
Applicant: ODYSSEY PHARMACEUTICALS INC
Approved: Dec 8, 1983 | RLD: Yes | RS: No | Type: DISCN